FAERS Safety Report 17804049 (Version 1)
Quarter: 2020Q2

REPORT INFORMATION
  Report Type: Spontaneous
  Country: IN (occurrence: IN)
  Receive Date: 20200519
  Receipt Date: 20200519
  Transmission Date: 20200714
  Serious: Yes (Hospitalization, Other)
  Sender: FDA-Public Use
  Company Number: IN-VALIDUS PHARMACEUTICALS LLC-IN-2020VAL000408

PATIENT

DRUGS (3)
  1. AMIKACIN SULFATE. [Suspect]
     Active Substance: AMIKACIN SULFATE
     Indication: SEPSIS NEONATAL
     Dosage: UNK
     Route: 042
  2. CEFOTAXIME SODIUM [Suspect]
     Active Substance: CEFOTAXIME SODIUM
     Indication: SEPSIS NEONATAL
     Dosage: UNK
     Route: 042
  3. GLUCOSE [Concomitant]
     Active Substance: DEXTROSE
     Indication: PRODUCT USED FOR UNKNOWN INDICATION
     Dosage: UNK

REACTIONS (8)
  - Unintentional use for unapproved indication [Recovering/Resolving]
  - Apnoea [Recovering/Resolving]
  - Shock [Recovering/Resolving]
  - Skin hyperpigmentation [Recovering/Resolving]
  - Anal candidiasis [Recovering/Resolving]
  - Fungal sepsis [Recovering/Resolving]
  - Cyanosis [Recovering/Resolving]
  - Dermatitis diaper [Recovering/Resolving]
